FAERS Safety Report 5590385-5 (Version None)
Quarter: 2008Q1

REPORT INFORMATION
  Report Type: 
  Country: None (occurrence: None)
  Receive Date: 20080114
  Receipt Date: 20071217
  Transmission Date: 20080703
  Serious: No
  Sender: FDA-Public Use
  Company Number: US-BOEHRINGER INGELHEIM PHARMACEUTICALS, INC.-2007-BP-25313BP

PATIENT
  Age: 65 Year
  Sex: Female

DRUGS (2)
  1. ZANTAC 75 [Suspect]
     Indication: DYSPEPSIA
     Route: 048
     Dates: start: 20071128, end: 20071128
  2. ZANTAC 75 [Suspect]

REACTIONS (2)
  - ABDOMINAL DISTENSION [None]
  - STOMACH DISCOMFORT [None]
